FAERS Safety Report 21167311 (Version 1)
Quarter: 2022Q3

REPORT INFORMATION
  Report Type: Spontaneous
  Country: US (occurrence: None)
  Receive Date: 20220803
  Receipt Date: 20220803
  Transmission Date: 20221027
  Serious: No
  Sender: FDA-Public Use
  Company Number: None

PATIENT
  Age: 87 Year
  Sex: Male

DRUGS (1)
  1. ERIVEDGE [Suspect]
     Active Substance: VISMODEGIB
     Indication: Basal cell carcinoma
     Dosage: TAKE 1 CAPSULE  BY MOUTH DAILY  AS DIRECTED
     Route: 048
     Dates: start: 202110

REACTIONS (3)
  - Haematochezia [None]
  - Weight decreased [None]
  - Ageusia [None]
